FAERS Safety Report 4591145-4 (Version None)
Quarter: 2005Q1

REPORT INFORMATION
  Report Type: 
  Country: None (occurrence: None)
  Receive Date: 20050223
  Receipt Date: 20050223
  Transmission Date: 20050727
  Serious: Yes (Life-Threatening, Hospitalization, Other)
  Sender: FDA-Public Use
  Company Number: None

PATIENT
  Age: 1 Day
  Sex: Male
  Weight: 2.336 kg

DRUGS (2)
  1. PAXIL CR [Suspect]
     Indication: ANXIETY
     Dosage: 25 MG
     Dates: start: 20030611, end: 20040222
  2. PAXIL CR [Suspect]
     Indication: PANIC DISORDER
     Dosage: 25 MG
     Dates: start: 20030611, end: 20040222

REACTIONS (11)
  - BODY TEMPERATURE DECREASED [None]
  - CONGENITAL ANOMALY [None]
  - DRUG EXPOSURE DURING PREGNANCY [None]
  - DRUG EXPOSURE VIA BREAST MILK [None]
  - FEELING JITTERY [None]
  - HYPERVENTILATION [None]
  - NEONATAL DISORDER [None]
  - NEONATAL RESPIRATORY ARREST [None]
  - NERVOUS SYSTEM DISORDER [None]
  - SEPSIS NEONATAL [None]
  - TEMPERATURE REGULATION DISORDER [None]
